FAERS Safety Report 6974545-4 (Version None)
Quarter: 2010Q3

REPORT INFORMATION
  Report Type: 
  Country: None (occurrence: None)
  Receive Date: 20100909
  Receipt Date: 20100909
  Transmission Date: 20110219
  Serious: No
  Sender: FDA-Public Use
  Company Number: None

PATIENT

DRUGS (1)
  1. ROPIVACAINE HYDROCHLORIDE [Suspect]
     Dosage: 750ML IV DRIP
     Route: 041

REACTIONS (1)
  - PHYSICAL PRODUCT LABEL ISSUE [None]
